FAERS Safety Report 6137996-6 (Version None)
Quarter: 2009Q1

REPORT INFORMATION
  Report Type: 
  Country: None (occurrence: None)
  Receive Date: 20090327
  Receipt Date: 20090327
  Transmission Date: 20090719
  Serious: Yes (Other)
  Sender: FDA-Public Use
  Company Number: None

PATIENT
  Age: 55 Year
  Sex: Female
  Weight: 63.5036 kg

DRUGS (1)
  1. GUAIFENESIN [Suspect]
     Indication: NASAL CONGESTION
     Dosage: 100MG PER 5ML TSP EVERY 4 HOURS ORAL
     Route: 048
     Dates: start: 20090222, end: 20090224

REACTIONS (2)
  - MEDICATION ERROR [None]
  - PRODUCT QUALITY ISSUE [None]
